FAERS Safety Report 21420985 (Version 2)
Quarter: 2024Q1

REPORT INFORMATION
  Report Type: Report from Study
  Country: US (occurrence: US)
  Receive Date: 20221007
  Receipt Date: 20240222
  Transmission Date: 20240410
  Serious: Yes (Hospitalization)
  Sender: FDA-Public Use
  Company Number: US-ABBVIE-22K-163-4520164-00

PATIENT
  Sex: Female

DRUGS (4)
  1. HUMIRA [Suspect]
     Active Substance: ADALIMUMAB
     Indication: Rheumatoid arthritis
     Dosage: CITRATE FREE
     Route: 058
  2. PFIZER-BIONTECH COVID-19 VACCINE [Concomitant]
     Active Substance: TOZINAMERAN
     Indication: COVID-19 immunisation
     Dosage: 1ST DOSE; FREQUENCY: ONE IN ONCE
     Route: 030
     Dates: start: 202103, end: 202103
  3. PFIZER-BIONTECH COVID-19 VACCINE [Concomitant]
     Active Substance: TOZINAMERAN
     Indication: COVID-19 immunisation
     Dosage: 2ND DOSE; FREQUENCY: ONE IN ONCE
     Route: 030
     Dates: start: 202103, end: 202103
  4. PFIZER-BIONTECH COVID-19 VACCINE [Concomitant]
     Active Substance: TOZINAMERAN
     Indication: COVID-19 immunisation
     Dosage: 3RD DOSE; FREQUENCY: ONE IN ONCE
     Route: 030
     Dates: start: 202110, end: 202110

REACTIONS (2)
  - Pneumonia [Not Recovered/Not Resolved]
  - Gastrointestinal inflammation [Unknown]

NARRATIVE: CASE EVENT DATE: 20220101
